FAERS Safety Report 7833508-7 (Version None)
Quarter: 2011Q4

REPORT INFORMATION
  Report Type: 
  Country: None (occurrence: None)
  Receive Date: 20111024
  Receipt Date: 20111012
  Transmission Date: 20120403
  Serious: Yes (Hospitalization)
  Sender: FDA-Public Use
  Company Number: US-BAYER-2011-006811

PATIENT
  Sex: Female
  Weight: 150 kg

DRUGS (2)
  1. CIMETIDINE [Concomitant]
     Indication: ABDOMINAL DISCOMFORT
  2. YASMIN [Suspect]
     Indication: PRODUCT USED FOR UNKNOWN INDICATION
     Dosage: UNK
     Route: 048
     Dates: start: 20030401, end: 20050101

REACTIONS (8)
  - INJURY [None]
  - VOMITING [None]
  - PAIN [None]
  - EMOTIONAL DISTRESS [None]
  - ANXIETY [None]
  - MENTAL DISORDER [None]
  - FEAR [None]
  - GALLBLADDER DISORDER [None]
